FAERS Safety Report 5551997-8 (Version None)
Quarter: 2007Q4

REPORT INFORMATION
  Report Type: 
  Country: None (occurrence: None)
  Receive Date: 20071212
  Receipt Date: 20071130
  Transmission Date: 20080405
  Serious: Yes (Hospitalization, Other)
  Sender: FDA-Public Use
  Company Number: US-PFIZER INC-2007102279

PATIENT
  Sex: Female

DRUGS (5)
  1. CHANTIX [Suspect]
  2. COREG [Suspect]
  3. CRESTOR [Concomitant]
  4. LISINOPRIL [Concomitant]
  5. ACETYLSALICYLIC ACID SRT [Concomitant]

REACTIONS (7)
  - ASTHENIA [None]
  - DEHYDRATION [None]
  - DIZZINESS [None]
  - FATIGUE [None]
  - HYPERTENSION [None]
  - NAUSEA [None]
  - VISION BLURRED [None]
